FAERS Safety Report 15657704 (Version 2)
Quarter: 2018Q4

REPORT INFORMATION
  Report Type: Spontaneous
  Country: IL (occurrence: IL)
  Receive Date: 20181126
  Receipt Date: 20181130
  Transmission Date: 20190205
  Serious: Yes (Other)
  Sender: FDA-Public Use
  Company Number: IL-PFIZER INC-2018481557

PATIENT
  Age: 7 Year
  Sex: Female

DRUGS (1)
  1. GENOTROPIN [Suspect]
     Active Substance: SOMATROPIN
     Dosage: UNK
     Route: 058
     Dates: start: 20180529

REACTIONS (5)
  - Incorrect dose administered by device [Unknown]
  - Growth retardation [Unknown]
  - Device leakage [Unknown]
  - Lack of injection site rotation [Unknown]
  - Wrong technique in device usage process [Unknown]
